FAERS Safety Report 8315732-2 (Version None)
Quarter: 2012Q2

REPORT INFORMATION
  Report Type: 
  Country: None (occurrence: None)
  Receive Date: 20120426
  Receipt Date: 20120424
  Transmission Date: 20120825
  Serious: Yes (Other)
  Sender: FDA-Public Use
  Company Number: US-MERCK-1201USA00990

PATIENT
  Age: 63 Year
  Sex: Female
  Weight: 58 kg

DRUGS (5)
  1. BONIVA [Suspect]
     Route: 048
     Dates: start: 20060701, end: 20061204
  2. FOSAMAX PLUS D [Suspect]
     Indication: BONE DISORDER
     Route: 048
     Dates: start: 20071022, end: 20080301
  3. ZOMETA [Suspect]
     Route: 042
     Dates: start: 20040621, end: 20060517
  4. FOSAMAX [Suspect]
     Route: 048
     Dates: start: 20070101, end: 20090101
  5. AROMASIN [Concomitant]
     Indication: BREAST CANCER
     Route: 065
     Dates: start: 20040101, end: 20090101

REACTIONS (28)
  - CEREBRAL ATROPHY [None]
  - EXOSTOSIS [None]
  - CONJUNCTIVITIS [None]
  - ORAL DISORDER [None]
  - OSTEONECROSIS OF JAW [None]
  - ANXIETY [None]
  - OSTEORADIONECROSIS [None]
  - TOOTH INFECTION [None]
  - EXPOSED BONE IN JAW [None]
  - CEREBRAL ISCHAEMIA [None]
  - SINUS DISORDER [None]
  - PULMONARY GRANULOMA [None]
  - IMPLANT SITE REACTION [None]
  - DEPRESSION [None]
  - OFF LABEL USE [None]
  - SCAR [None]
  - TOOTH DISORDER [None]
  - STOMATITIS [None]
  - LIP NEOPLASM [None]
  - LIP AND/OR ORAL CAVITY CANCER [None]
  - INSOMNIA [None]
  - FISTULA [None]
  - INFECTION [None]
  - LICHEN PLANUS [None]
  - PITUITARY TUMOUR BENIGN [None]
  - ORAL INFECTION [None]
  - VIRAL UPPER RESPIRATORY TRACT INFECTION [None]
  - VISUAL PATHWAY DISORDER [None]
